FAERS Safety Report 10197046 (Version 1)
Quarter: 2014Q2

REPORT INFORMATION
  Report Type: Spontaneous
  Country: NO (occurrence: NO)
  Receive Date: 20140527
  Receipt Date: 20140527
  Transmission Date: 20141212
  Serious: Yes (Other)
  Sender: FDA-Public Use
  Company Number: NO-UCBSA-121687

PATIENT
  Age: 48 Year
  Sex: Female
  Weight: 65 kg

DRUGS (3)
  1. KEPPRA [Suspect]
     Indication: EPILEPSY
     Dates: start: 20140110, end: 20140402
  2. LEVAXIN [Concomitant]
     Indication: METABOLIC DISORDER
     Dates: start: 19990101
  3. CALCIUM WITH VITAMIN D AND K [Concomitant]

REACTIONS (10)
  - Suicidal ideation [Recovered/Resolved]
  - Premenstrual syndrome [Recovering/Resolving]
  - Menstrual disorder [Recovering/Resolving]
  - Fatigue [Recovering/Resolving]
  - Depression [Recovering/Resolving]
  - Depressed mood [Recovering/Resolving]
  - Dyspepsia [Recovering/Resolving]
  - Alopecia [Recovering/Resolving]
  - Nausea [Recovering/Resolving]
  - Acne [Recovering/Resolving]
